FAERS Safety Report 9453154 (Version 1)
Quarter: 2013Q3

REPORT INFORMATION
  Report Type: Spontaneous
  Country: US (occurrence: US)
  Receive Date: 20130812
  Receipt Date: 20130812
  Transmission Date: 20140515
  Serious: Yes (Hospitalization)
  Sender: FDA-Public Use
  Company Number: US-ROCHE-1187615

PATIENT
  Age: 50 Year
  Sex: Male

DRUGS (4)
  1. PEGASYS [Suspect]
     Indication: HEPATITIS C
     Dosage: STOPPED
     Route: 065
     Dates: start: 20121226
  2. PEGASYS [Suspect]
     Dosage: RESTARTED
     Route: 065
     Dates: start: 20130202
  3. COPEGUS [Suspect]
     Indication: PRODUCT USED FOR UNKNOWN INDICATION
     Dosage: IN DIVIDED DOSES
     Route: 065
     Dates: start: 20121226
  4. COPEGUS [Suspect]
     Dosage: IN DIVIDED DOSES
     Route: 065
     Dates: start: 20130202

REACTIONS (20)
  - Renal failure [Unknown]
  - Lipoma excision [Unknown]
  - Vomiting [Not Recovered/Not Resolved]
  - Diarrhoea [Recovering/Resolving]
  - Weight decreased [Unknown]
  - Nausea [Not Recovered/Not Resolved]
  - Nervousness [Unknown]
  - Alopecia [Unknown]
  - Pain [Unknown]
  - Chills [Unknown]
  - Fatigue [Not Recovered/Not Resolved]
  - Dysgeusia [Unknown]
  - Pyrexia [Unknown]
  - Subcutaneous abscess [Unknown]
  - Tooth fracture [Unknown]
  - Tooth abscess [Unknown]
  - Face oedema [Unknown]
  - Influenza like illness [Unknown]
  - Malaise [Unknown]
  - Skin ulcer [Unknown]
